FAERS Safety Report 24174972 (Version 2)
Quarter: 2024Q3

REPORT INFORMATION
  Report Type: Spontaneous
  Country: PK (occurrence: PK)
  Receive Date: 20240805
  Receipt Date: 20240930
  Transmission Date: 20241016
  Serious: Yes (Other)
  Sender: PFIZER
  Company Number: PK-PFIZER INC-PV202400036324

PATIENT
  Age: 37 Year
  Sex: Male
  Weight: 64 kg

DRUGS (7)
  1. IXIFI [Suspect]
     Active Substance: INFLIXIMAB-QBTX
     Indication: Colitis ulcerative
     Dosage: 320 MG, 4 VIALS, 0-DAY THEN 7TH, 15TH, 28TH DAY (PRESCRIBED WAS 400 MG)
     Route: 042
  2. IXIFI [Suspect]
     Active Substance: INFLIXIMAB-QBTX
     Dosage: 400MG, 0,7,14,28 DAYS
     Route: 042
  3. IXIFI [Suspect]
     Active Substance: INFLIXIMAB-QBTX
     Dosage: 400MG, 0,7,14,28 DAYS
     Route: 042
  4. PANTOPRAZOLE SODIUM [Concomitant]
     Active Substance: PANTOPRAZOLE SODIUM
     Dosage: 40 MG (BEFORE MEAL)
  5. IMOVANE [Concomitant]
     Active Substance: ZOPICLONE
     Dosage: 5 MG, 1X/DAY (MORNING)
  6. BETNELAN [BETAMETHASONE SODIUM PHOSPHATE] [Concomitant]
     Dosage: 0.5 MG, 1X/DAY (MORNING)
  7. TOFAJAK [Concomitant]
     Dosage: 5 MG, 1X/DAY (MORNING)

REACTIONS (3)
  - Pyoderma gangrenosum [Recovering/Resolving]
  - Blood pressure systolic increased [Unknown]
  - Off label use [Unknown]

NARRATIVE: CASE EVENT DATE: 20240520
